FAERS Safety Report 4425685-5 (Version None)
Quarter: 2004Q3

REPORT INFORMATION
  Report Type: 
  Country: None (occurrence: None)
  Receive Date: 20040716
  Receipt Date: 20031024
  Transmission Date: 20050211
  Serious: Yes (Other)
  Sender: FDA-Public Use
  Company Number: 203025

PATIENT
  Age: 59 Year
  Sex: Male

DRUGS (1)
  1. TNKASE [Suspect]
     Indication: ACUTE MYOCARDIAL INFARCTION
     Dosage: INTRAVENOUS
     Route: 042
     Dates: start: 20000601, end: 20000601

REACTIONS (1)
  - EMBOLIC STROKE [None]
